FAERS Safety Report 13944693 (Version 1)
Quarter: 2017Q3

REPORT INFORMATION
  Report Type: Spontaneous
  Country: ZA (occurrence: ZA)
  Receive Date: 20170907
  Receipt Date: 20170907
  Transmission Date: 20171128
  Serious: Yes (Death, Hospitalization, Other)
  Sender: FDA-Public Use
  Company Number: ZA-CIPLA LTD.-2017ZA16059

PATIENT

DRUGS (3)
  1. RISPERIDONE. [Suspect]
     Active Substance: RISPERIDONE
     Indication: ACUTE PSYCHOSIS
     Dosage: 1MG EVERY MORNING AND 2 MG EVERY NIGHT
     Route: 065
  2. TENOFOVIR/EMTRICITABINE/EFAVIRENZ [Suspect]
     Active Substance: EFAVIRENZ\EMTRICITABINE\TENOFOVIR DISOPROXIL FUMARATE
     Indication: HIV INFECTION
     Dosage: 300/200/600 MG
     Route: 065
  3. CITALOPRAM [Concomitant]
     Active Substance: CITALOPRAM HYDROBROMIDE
     Indication: ACUTE PSYCHOSIS
     Dosage: 20 MG, DAILY
     Route: 065

REACTIONS (7)
  - Drug level increased [Unknown]
  - Abnormal behaviour [Unknown]
  - Acute psychosis [Unknown]
  - Death [Fatal]
  - Ataxia [Unknown]
  - Dyskinesia [Unknown]
  - Confusional state [Recovered/Resolved]
